FAERS Safety Report 16361585 (Version 1)
Quarter: 2019Q2

REPORT INFORMATION
  Report Type: Spontaneous
  Country: US (occurrence: US)
  Receive Date: 20190528
  Receipt Date: 20190528
  Transmission Date: 20190711
  Serious: No
  Sender: FDA-Public Use
  Company Number: US-PFIZER INC-2019219030

PATIENT
  Age: 67 Year
  Sex: Female
  Weight: 113.38 kg

DRUGS (1)
  1. AMLODIPINE BESILATE [Suspect]
     Active Substance: AMLODIPINE BESYLATE
     Indication: HYPERTENSION
     Dosage: 20 MG, 1X/DAY(10MG 2 TABLETS BY MOUTH ONCE A DAY AT BEDTIME)
     Route: 048
     Dates: start: 2016

REACTIONS (7)
  - Somnolence [Unknown]
  - Dyspnoea [Not Recovered/Not Resolved]
  - Paraesthesia [Not Recovered/Not Resolved]
  - Peripheral swelling [Unknown]
  - Overdose [Unknown]
  - Cardiomegaly [Unknown]
  - Joint swelling [Unknown]

NARRATIVE: CASE EVENT DATE: 2016
